FAERS Safety Report 7244682-8 (Version None)
Quarter: 2011Q1

REPORT INFORMATION
  Report Type: 
  Country: None (occurrence: None)
  Receive Date: 20110125
  Receipt Date: 20110117
  Transmission Date: 20110831
  Serious: Yes (Hospitalization, Disabling)
  Sender: FDA-Public Use
  Company Number: FR-BAYER-2011-005677

PATIENT
  Sex: Female

DRUGS (11)
  1. PREVISCAN [Suspect]
     Dosage: UNK
     Route: 048
     Dates: start: 19980101
  2. CLAMOXYL [Suspect]
     Indication: SEPSIS
     Dosage: 1 DF, TID
     Route: 048
     Dates: start: 20101021, end: 20101024
  3. MOPRAL [Concomitant]
     Dosage: 1 DF, QD
     Route: 048
  4. FORLAX [Concomitant]
     Dosage: 1 DF, QD
     Route: 048
  5. DIFFU K [Concomitant]
     Dosage: 1 DF, BID
     Route: 048
  6. DURAGESIC-100 [Concomitant]
     Dosage: 1 DF, Q72HR
     Route: 062
     Dates: start: 20100901
  7. IZILOX [Suspect]
     Indication: SEPSIS
     Dosage: 1 DF, QD
     Route: 048
     Dates: start: 20101021, end: 20101024
  8. LASIX [Concomitant]
     Dosage: 1 DF, BID
     Route: 048
  9. LAROXYL [Concomitant]
     Dosage: 10 GTT/D
  10. NOCTRAN 10 [Concomitant]
     Dosage: 1 DF, QD
     Route: 048
  11. GAVISCON [Concomitant]
     Dosage: 1 DF, TID
     Route: 048

REACTIONS (2)
  - MELAENA [None]
  - ANAEMIA [None]
